FAERS Safety Report 23747721 (Version 1)
Quarter: 2024Q2

REPORT INFORMATION
  Report Type: Spontaneous
  Country: IL (occurrence: IL)
  Receive Date: 20240416
  Receipt Date: 20240416
  Transmission Date: 20240716
  Serious: Yes (Hospitalization)
  Sender: FDA-Public Use
  Company Number: IL-FreseniusKabi-FK202406217

PATIENT
  Age: 22 Year
  Sex: Female

DRUGS (2)
  1. PIPERACILLIN AND TAZOBACTAM [Suspect]
     Active Substance: PIPERACILLIN SODIUM\TAZOBACTAM SODIUM
     Indication: Product used for unknown indication
  2. AMIKACIN B. BRAUN [Concomitant]
     Indication: Product used for unknown indication
     Dosage: AMIKACIN B.BRAUN (AMIKACIN AS SULFATE) 5 MG/ML

REACTIONS (3)
  - Rash [Unknown]
  - Pruritus [Unknown]
  - Dyspnoea [Unknown]

NARRATIVE: CASE EVENT DATE: 20240401
